FAERS Safety Report 11475473 (Version 1)
Quarter: 2015Q3

REPORT INFORMATION
  Report Type: Spontaneous
  Country: US (occurrence: US)
  Receive Date: 20150909
  Receipt Date: 20150909
  Transmission Date: 20151125
  Serious: No
  Sender: FDA-Public Use
  Company Number: US-009507513-1508USA012238

PATIENT
  Sex: Male

DRUGS (2)
  1. EMEND [Suspect]
     Active Substance: APREPITANT
     Dosage: 125 MG, UNK
     Route: 048
  2. EMEND [Suspect]
     Active Substance: APREPITANT
     Dosage: 80 MG, UNK
     Route: 048

REACTIONS (3)
  - Abdominal pain upper [Not Recovered/Not Resolved]
  - Adverse event [Not Recovered/Not Resolved]
  - Drug dose omission [Unknown]
